FAERS Safety Report 17506664 (Version 1)
Quarter: 2020Q1

REPORT INFORMATION
  Report Type: Spontaneous
  Country: US (occurrence: US)
  Receive Date: 20200305
  Receipt Date: 20200305
  Transmission Date: 20200409
  Serious: Yes (Life-Threatening, Disabling)
  Sender: FDA-Public Use
  Company Number: US-ROCHE-2460782

PATIENT
  Age: 27 Year
  Sex: Female
  Weight: 62.65 kg

DRUGS (2)
  1. SINGULAIR [Concomitant]
     Active Substance: MONTELUKAST SODIUM
     Indication: CHRONIC SPONTANEOUS URTICARIA
     Route: 048
     Dates: start: 20190121, end: 20190806
  2. XOLAIR [Suspect]
     Active Substance: OMALIZUMAB
     Indication: CHRONIC SPONTANEOUS URTICARIA
     Route: 058
     Dates: start: 20190322, end: 20191028

REACTIONS (1)
  - Gastrointestinal neoplasm [Not Recovered/Not Resolved]

NARRATIVE: CASE EVENT DATE: 20190831
